FAERS Safety Report 6583313-7 (Version None)
Quarter: 2010Q1

REPORT INFORMATION
  Report Type: 
  Country: None (occurrence: None)
  Receive Date: 20100216
  Receipt Date: 20100210
  Transmission Date: 20100710
  Serious: Yes (Other)
  Sender: FDA-Public Use
  Company Number: CHPA2010CA03002

PATIENT
  Sex: Male

DRUGS (1)
  1. THRIVE 2 MG [Suspect]
     Indication: SMOKING CESSATION THERAPY
     Dosage: 12 GUMS A DAY
     Route: 048
     Dates: start: 20100101, end: 20100201

REACTIONS (5)
  - COUGH [None]
  - ODYNOPHAGIA [None]
  - OROPHARYNGEAL PAIN [None]
  - PHARYNGEAL HAEMORRHAGE [None]
  - RHINORRHOEA [None]
